FAERS Safety Report 8480650-6 (Version None)
Quarter: 2012Q3

REPORT INFORMATION
  Report Type: 
  Country: None (occurrence: None)
  Receive Date: 20120702
  Receipt Date: 20120627
  Transmission Date: 20120928
  Serious: No
  Sender: FDA-Public Use
  Company Number: US-PFIZER INC-2012155392

PATIENT
  Sex: Female
  Weight: 44.444 kg

DRUGS (2)
  1. CHILDREN'S ADVIL [Suspect]
     Indication: PYREXIA
     Dosage: UNK
     Dates: start: 20120626, end: 20120626
  2. AMOXICILLIN [Concomitant]
     Indication: PHARYNGITIS STREPTOCOCCAL
     Dosage: UNK
     Dates: start: 20120627

REACTIONS (6)
  - ANXIETY [None]
  - ABNORMAL BEHAVIOUR [None]
  - INSOMNIA [None]
  - FATIGUE [None]
  - MOVEMENT DISORDER [None]
  - PSYCHOMOTOR HYPERACTIVITY [None]
